FAERS Safety Report 4347632-7 (Version None)
Quarter: 2004Q2

REPORT INFORMATION
  Report Type: 
  Country: None (occurrence: None)
  Receive Date: 20040422
  Receipt Date: 20040406
  Transmission Date: 20050107
  Serious: Yes (Other)
  Sender: FDA-Public Use
  Company Number: US_0404102109

PATIENT
  Sex: Female
  Weight: 73 kg

DRUGS (3)
  1. HUMULIN N [Suspect]
     Dates: start: 19820101, end: 19990101
  2. HUMULIN R [Suspect]
     Dates: start: 19840101, end: 19990101
  3. HUMALOG [Suspect]
     Dates: start: 19990101

REACTIONS (4)
  - BLOOD GLUCOSE DECREASED [None]
  - EYE HAEMORRHAGE [None]
  - HEADACHE [None]
  - RASH [None]
